FAERS Safety Report 9863743 (Version 1)
Quarter: 2014Q1

REPORT INFORMATION
  Report Type: Spontaneous
  Country: US (occurrence: US)
  Receive Date: 20140203
  Receipt Date: 20140203
  Transmission Date: 20141002
  Serious: Yes (Other)
  Sender: FDA-Public Use
  Company Number: US-NAPPMUNDI-USA-2011-0071234

PATIENT
  Age: 60 Year
  Sex: Female

DRUGS (1)
  1. THEOPHYLLINE (SIMILAR TO 40-086) [Suspect]
     Indication: PRODUCT USED FOR UNKNOWN INDICATION
     Dosage: UNK

REACTIONS (4)
  - Toxicity to various agents [Unknown]
  - Drug hypersensitivity [Unknown]
  - Tremor [Unknown]
  - Crying [Unknown]
